FAERS Safety Report 6397159-6 (Version None)
Quarter: 2009Q4

REPORT INFORMATION
  Report Type: 
  Country: None (occurrence: None)
  Receive Date: 20091012
  Receipt Date: 20090929
  Transmission Date: 20100525
  Serious: Yes (Other)
  Sender: FDA-Public Use
  Company Number: B0597314A

PATIENT
  Age: 35 Year
  Sex: Male

DRUGS (1)
  1. ZIDOVUDINE [Suspect]
     Indication: ACQUIRED IMMUNODEFICIENCY SYNDROME
     Route: 065

REACTIONS (4)
  - ANAEMIA [None]
  - DYSPNOEA [None]
  - PLEURITIC PAIN [None]
  - PYREXIA [None]
